FAERS Safety Report 18493773 (Version 1)
Quarter: 2020Q4

REPORT INFORMATION
  Report Type: Spontaneous
  Country: US (occurrence: US)
  Receive Date: 20201111
  Receipt Date: 20201111
  Transmission Date: 20210114
  Serious: Yes (Hospitalization, Other)
  Sender: FDA-Public Use
  Company Number: US-JNJFOC-20201114270

PATIENT
  Sex: Male

DRUGS (1)
  1. ZYTIGA [Suspect]
     Active Substance: ABIRATERONE ACETATE
     Indication: PRODUCT USED FOR UNKNOWN INDICATION
     Route: 048

REACTIONS (8)
  - Pyrexia [Unknown]
  - Chills [Unknown]
  - Abdominal pain upper [Unknown]
  - Amnesia [Unknown]
  - Nervous system disorder [Unknown]
  - Palpitations [Unknown]
  - Dysarthria [Unknown]
  - Asthenia [Unknown]
